FAERS Safety Report 20222258 (Version 1)
Quarter: 2021Q4

REPORT INFORMATION
  Report Type: Spontaneous
  Country: US (occurrence: None)
  Receive Date: 20211223
  Receipt Date: 20211223
  Transmission Date: 20220303
  Serious: Yes (Hospitalization)
  Sender: FDA-Public Use
  Company Number: None

PATIENT
  Sex: Female
  Weight: 91.6 kg

DRUGS (1)
  1. ASPIRIN [Suspect]
     Active Substance: ASPIRIN
     Dates: end: 20211205

REACTIONS (5)
  - Asthenia [None]
  - Fatigue [None]
  - Dyspnoea [None]
  - SARS-CoV-2 test positive [None]
  - Pulmonary embolism [None]

NARRATIVE: CASE EVENT DATE: 20211220
